FAERS Safety Report 20490506 (Version 2)
Quarter: 2022Q1

REPORT INFORMATION
  Report Type: Spontaneous
  Country: US (occurrence: US)
  Receive Date: 20220218
  Receipt Date: 20220308
  Transmission Date: 20220423
  Serious: No
  Sender: FDA-Public Use
  Company Number: US-KYOWAKIRIN-2022BKK001810

PATIENT

DRUGS (5)
  1. NOURIANZ [Suspect]
     Active Substance: ISTRADEFYLLINE
     Indication: Parkinson^s disease
     Dosage: 20 MG, QD
     Route: 048
     Dates: start: 20210720, end: 202111
  2. GOCOVRI [Suspect]
     Active Substance: AMANTADINE
     Indication: Dyskinesia
     Dosage: 274 MG, 1X/DAY NIGHTLY
     Route: 048
     Dates: start: 20200121
  3. AMITRIPTYLINE [Concomitant]
     Active Substance: AMITRIPTYLINE
     Indication: Product used for unknown indication
     Dosage: 75 MG, UNKNOWN
     Route: 065
  4. GABAPENTIN [Concomitant]
     Active Substance: GABAPENTIN
     Indication: Product used for unknown indication
     Dosage: 100 MG, UNKNOWN
     Route: 065
  5. INDOMETHACIN [Concomitant]
     Active Substance: INDOMETHACIN
     Indication: Product used for unknown indication
     Dosage: 25 MG, UNKNOWN
     Route: 065

REACTIONS (2)
  - Back pain [Unknown]
  - Dizziness [Unknown]

NARRATIVE: CASE EVENT DATE: 20210101
